FAERS Safety Report 10100748 (Version 3)
Quarter: 2014Q3

REPORT INFORMATION
  Report Type: Spontaneous
  Country: IT (occurrence: IT)
  Receive Date: 20140423
  Receipt Date: 20140702
  Transmission Date: 20150326
  Serious: Yes (Other)
  Sender: FDA-Public Use
  Company Number: PHHY2014IT047419

PATIENT
  Age: 72 Year

DRUGS (6)
  1. KARVEA [Concomitant]
     Active Substance: IRBESARTAN
     Indication: CARDIOMYOPATHY
     Dosage: UNK UKN, UNK
  2. EUCREAS [Suspect]
     Active Substance: METFORMIN HYDROCHLORIDE\VILDAGLIPTIN
     Indication: DIABETES MELLITUS
     Dosage: 1 DF (850MG METF/ 50 MG VILD), BID
  3. METFORMIN [Suspect]
     Active Substance: METFORMIN HYDROCHLORIDE
     Indication: DIABETES MELLITUS
     Dosage: 500 MG, UNK
  4. PLAVIX [Concomitant]
     Active Substance: CLOPIDOGREL BISULFATE
     Indication: CEREBROVASCULAR DISORDER
     Dosage: UNK UKN, UNK
  5. PLAVIX [Concomitant]
     Active Substance: CLOPIDOGREL BISULFATE
     Indication: TRANSIENT ISCHAEMIC ATTACK
  6. APLACTIN [Concomitant]
     Active Substance: PRAVASTATIN SODIUM
     Indication: CARDIOMYOPATHY
     Dosage: UNK UKN, UNK

REACTIONS (1)
  - Diabetic ulcer [Recovering/Resolving]
